FAERS Safety Report 12603511 (Version 3)
Quarter: 2017Q1

REPORT INFORMATION
  Report Type: Spontaneous
  Country: US (occurrence: US)
  Receive Date: 20160728
  Receipt Date: 20170126
  Transmission Date: 20170428
  Serious: No
  Sender: FDA-Public Use
  Company Number: US-AKRIMAX-TIR-2016-0593

PATIENT
  Age: 44 Year
  Sex: Female
  Weight: 103.51 kg

DRUGS (17)
  1. TIROSINT [Suspect]
     Active Substance: LEVOTHYROXINE SODIUM
     Indication: AUTOIMMUNE THYROIDITIS
     Dosage: 163MCG DAILY
     Route: 048
     Dates: start: 201603, end: 201605
  2. VITAMIN D [Concomitant]
     Active Substance: CHOLECALCIFEROL
     Indication: PRODUCT USED FOR UNKNOWN INDICATION
  3. TIROSINT [Suspect]
     Active Substance: LEVOTHYROXINE SODIUM
     Dosage: 163MCG DAILY
     Route: 048
     Dates: start: 201603, end: 201605
  4. TIROSINT [Suspect]
     Active Substance: LEVOTHYROXINE SODIUM
     Dosage: 125MCG IN THE MORNING, 13MCG AT 1PM, 13MCG AT 6PM ON MONDAY, WEDNESDAY, THURSDAY, SATURDAY, AND SUND
     Route: 048
  5. PERCOCET [Concomitant]
     Active Substance: ACETAMINOPHEN\OXYCODONE HYDROCHLORIDE
     Indication: PRODUCT USED FOR UNKNOWN INDICATION
  6. TIROSINT [Suspect]
     Active Substance: LEVOTHYROXINE SODIUM
     Dosage: ONE 125MCG CAPSULE IN THE MORNING, ONE 13MCG CAPSULE AT 1PM, ONE 13MCG CAPSULE AT 6PM. ON ALTERNATIN
     Route: 048
     Dates: start: 2016
  7. TIROSINT [Suspect]
     Active Substance: LEVOTHYROXINE SODIUM
     Indication: AUTOIMMUNE THYROIDITIS
     Dosage: ONCE DAILY IN THE MORNING
     Route: 048
     Dates: start: 201604
  8. TIROSINT [Suspect]
     Active Substance: LEVOTHYROXINE SODIUM
     Dosage: ONCE DAILY ^LATER IN THE DAY^
     Route: 048
     Dates: start: 201605
  9. MULTIVITAMIN [Concomitant]
     Active Substance: VITAMINS
     Indication: PRODUCT USED FOR UNKNOWN INDICATION
  10. TIROSINT [Suspect]
     Active Substance: LEVOTHYROXINE SODIUM
     Dosage: ONE 13MCG CAPSULE AT 1 PM
     Route: 048
     Dates: start: 20160708, end: 20160708
  11. VITAMIN E [Concomitant]
     Active Substance: .ALPHA.-TOCOPHEROL
     Indication: PRODUCT USED FOR UNKNOWN INDICATION
  12. TIROSINT [Suspect]
     Active Substance: LEVOTHYROXINE SODIUM
     Dosage: ONE 125MCG CAPSULE IN THE MORNING, ONE 13MCG CAPSULE AT 1PM, ONE 13MCG CAPSULE AT 6PM. ON ALTERNATIN
     Route: 048
     Dates: start: 2016
  13. TIROSINT [Suspect]
     Active Substance: LEVOTHYROXINE SODIUM
     Indication: AUTOIMMUNE THYROIDITIS
     Dosage: ONE CAPSULE AT 12PM AND ONE CAPSULE AT 6PM
     Route: 048
     Dates: start: 201604
  14. TIROSINT [Suspect]
     Active Substance: LEVOTHYROXINE SODIUM
     Dosage: ONCE IN THE MORNING
     Route: 048
     Dates: start: 20160708
  15. TIROSINT [Suspect]
     Active Substance: LEVOTHYROXINE SODIUM
     Dosage: 125MCG IN THE MORNING, 13MCG AT 1PM, 13MCG AT 6PM ON MONDAY, WEDNESDAY, THURSDAY, SATURDAY, AND SUND
     Route: 048
  16. TIROSINT [Suspect]
     Active Substance: LEVOTHYROXINE SODIUM
     Indication: AUTOIMMUNE THYROIDITIS
     Dosage: ONCE DAILY BEFORE BREAKFAST
     Route: 048
     Dates: start: 201605
  17. OMEGA-3 ACIDS [Concomitant]
     Active Substance: OMEGA-3 FATTY ACIDS
     Indication: PRODUCT USED FOR UNKNOWN INDICATION

REACTIONS (29)
  - Aphonia [Unknown]
  - Hyperthyroidism [Unknown]
  - Activities of daily living impaired [Recovered/Resolved]
  - Foot deformity [Recovering/Resolving]
  - Abdominal pain [Recovered/Resolved]
  - Alopecia [Recovering/Resolving]
  - Weight decreased [Unknown]
  - Incision site rash [Unknown]
  - Malaise [Recovered/Resolved]
  - Nausea [Unknown]
  - Metrorrhagia [Unknown]
  - Malaise [Unknown]
  - Drug level above therapeutic [Unknown]
  - Drug ineffective [Unknown]
  - Menstrual discomfort [Unknown]
  - Menorrhagia [Unknown]
  - Thyroid function test abnormal [Unknown]
  - Throat irritation [Not Recovered/Not Resolved]
  - Rash erythematous [Unknown]
  - Skin exfoliation [Unknown]
  - Lethargy [Recovered/Resolved]
  - Diarrhoea [Unknown]
  - Dry skin [Unknown]
  - Bone fragmentation [Recovering/Resolving]
  - Application site reaction [Unknown]
  - Product quality issue [Unknown]
  - Thyroid function test abnormal [Unknown]
  - Weight increased [Unknown]
  - Fatigue [Unknown]

NARRATIVE: CASE EVENT DATE: 2016
